FAERS Safety Report 12748077 (Version 1)
Quarter: 2016Q3

REPORT INFORMATION
  Report Type: Spontaneous
  Country: US (occurrence: US)
  Receive Date: 20160915
  Receipt Date: 20160915
  Transmission Date: 20161109
  Serious: No
  Sender: FDA-Public Use
  Company Number: US-ASTELLAS-2016US005715

PATIENT
  Age: 87 Year
  Sex: Male

DRUGS (1)
  1. XTANDI [Suspect]
     Active Substance: ENZALUTAMIDE
     Indication: HORMONE-REFRACTORY PROSTATE CANCER
     Route: 048
     Dates: start: 20160114, end: 201603

REACTIONS (11)
  - Peripheral swelling [Unknown]
  - Dysgeusia [Recovered/Resolved]
  - Abnormal dreams [Recovered/Resolved]
  - Gastrooesophageal reflux disease [Recovered/Resolved]
  - Nausea [Recovered/Resolved]
  - Dyspepsia [Recovered/Resolved]
  - Insomnia [Recovered/Resolved]
  - Nightmare [Unknown]
  - Pain in extremity [Recovered/Resolved]
  - Foreign body [Recovered/Resolved]
  - Influenza [Recovered/Resolved]

NARRATIVE: CASE EVENT DATE: 201601
